FAERS Safety Report 18956891 (Version 1)
Quarter: 2021Q1

REPORT INFORMATION
  Report Type: Spontaneous
  Country: US (occurrence: US)
  Receive Date: 20210302
  Receipt Date: 20210302
  Transmission Date: 20210420
  Serious: No
  Sender: FDA-Public Use
  Company Number: US-ASTRAZENECA-2021A028914

PATIENT
  Age: 26768 Day
  Weight: 127.9 kg

DRUGS (1)
  1. FASENRA [Suspect]
     Active Substance: BENRALIZUMAB
     Indication: ASTHMA
     Route: 058
     Dates: start: 202006

REACTIONS (6)
  - Injection site pain [Unknown]
  - Wheezing [Unknown]
  - Cough [Unknown]
  - Incorrect dose administered [Unknown]
  - Injection site extravasation [Unknown]
  - Asthma [Unknown]

NARRATIVE: CASE EVENT DATE: 20210120
